FAERS Safety Report 7849800-6 (Version None)
Quarter: 2011Q4

REPORT INFORMATION
  Report Type: 
  Country: None (occurrence: None)
  Receive Date: 20111025
  Receipt Date: 20111025
  Transmission Date: 20120403
  Serious: Yes (Hospitalization)
  Sender: FDA-Public Use
  Company Number: None

PATIENT
  Sex: Female
  Weight: 91.62 kg

DRUGS (5)
  1. TAXOL [Suspect]
     Dosage: 264 MG
  2. NEULASTA [Suspect]
     Dosage: 6 MG
  3. ATENOLOL [Concomitant]
  4. IFOSFAMIDE [Suspect]
     Dosage: 9000 MG
  5. LISINOPRIL AND HYDROCHLOROTHIAZIDE [Concomitant]

REACTIONS (1)
  - ANAEMIA [None]
